FAERS Safety Report 4299510-X (Version None)
Quarter: 2004Q1

REPORT INFORMATION
  Report Type: 
  Country: None (occurrence: None)
  Receive Date: 20040217
  Receipt Date: 20040217
  Transmission Date: 20041129
  Serious: Yes (Other)
  Sender: FDA-Public Use
  Company Number: None

PATIENT
  Age: 55 Year
  Sex: Female
  Weight: 89.3586 kg

DRUGS (1)
  1. ZICAM ZICAM LLC [Suspect]
     Indication: NASOPHARYNGITIS
     Dosage: 2ND DOSE 1 SPRAY NASAL
     Route: 045
     Dates: start: 20030205, end: 20030206

REACTIONS (4)
  - ANOSMIA [None]
  - NASAL DISCOMFORT [None]
  - PHARMACEUTICAL PRODUCT COMPLAINT [None]
  - SINUS DISORDER [None]
